FAERS Safety Report 4284651-3 (Version None)
Quarter: 2004Q1

REPORT INFORMATION
  Report Type: 
  Country: None (occurrence: None)
  Receive Date: 20040130
  Receipt Date: 20040114
  Transmission Date: 20041129
  Serious: No
  Sender: FDA-Public Use
  Company Number: 2003AP04522

PATIENT
  Age: 89 Year
  Sex: Male

DRUGS (1)
  1. SEROQUEL [Suspect]
     Indication: RESTLESSNESS
     Dosage: 25 MG DAILY PO
     Route: 048
     Dates: start: 20030328, end: 20031125

REACTIONS (1)
  - PANCYTOPENIA [None]
